FAERS Safety Report 8398105-6 (Version None)
Quarter: 2012Q2

REPORT INFORMATION
  Report Type: 
  Country: None (occurrence: None)
  Receive Date: 20120524
  Receipt Date: 20120518
  Transmission Date: 20120825
  Serious: Yes (Hospitalization, Other)
  Sender: FDA-Public Use
  Company Number: 2011SP016569

PATIENT
  Age: 21 Year
  Sex: Female
  Weight: 77.1115 kg

DRUGS (1)
  1. NUVARING [Suspect]
     Indication: CONTRACEPTION
     Dates: start: 20090222, end: 20091001

REACTIONS (17)
  - VAGINITIS BACTERIAL [None]
  - ABDOMINAL PAIN [None]
  - NAUSEA [None]
  - FALL [None]
  - HYPERCOAGULATION [None]
  - TRICUSPID VALVE INCOMPETENCE [None]
  - ABDOMINAL PAIN UPPER [None]
  - CONSTIPATION [None]
  - PULMONARY EMBOLISM [None]
  - OVARIAN CYST [None]
  - DYSPNOEA [None]
  - MITRAL VALVE INCOMPETENCE [None]
  - ARTHRALGIA [None]
  - ANXIETY [None]
  - TENDONITIS [None]
  - COAGULOPATHY [None]
  - CHEST PAIN [None]
